FAERS Safety Report 13374563 (Version 1)
Quarter: 2017Q1

REPORT INFORMATION
  Report Type: Report from Study
  Country: CA (occurrence: CA)
  Receive Date: 20170327
  Receipt Date: 20170327
  Transmission Date: 20170429
  Serious: Yes (Other)
  Sender: FDA-Public Use
  Company Number: CA-AMGEN-CANSL2017035546

PATIENT
  Age: 78 Year
  Sex: Female

DRUGS (10)
  1. GALANTAMINE. [Concomitant]
     Active Substance: GALANTAMINE
     Indication: MEMORY IMPAIRMENT
     Dosage: 8 MG, UNK
  2. PROLIA [Suspect]
     Active Substance: DENOSUMAB
     Indication: OSTEOPOROSIS
     Dosage: UNK
     Route: 065
     Dates: start: 20140806
  3. DILTIAZEM. [Concomitant]
     Active Substance: DILTIAZEM
  4. RANITIDINE. [Concomitant]
     Active Substance: RANITIDINE
  5. SIMVASTATIN. [Concomitant]
     Active Substance: SIMVASTATIN
  6. DIGOXIN. [Concomitant]
     Active Substance: DIGOXIN
  7. RIVAROXABAN [Concomitant]
     Active Substance: RIVAROXABAN
  8. VITAMIN D [Concomitant]
     Active Substance: CHOLECALCIFEROL
  9. BISOPROLOL [Concomitant]
     Active Substance: BISOPROLOL
  10. CALCIUM CARBONATE. [Concomitant]
     Active Substance: CALCIUM CARBONATE

REACTIONS (5)
  - Lower respiratory tract infection [Not Recovered/Not Resolved]
  - Cough [Recovered/Resolved]
  - Aphonia [Unknown]
  - Hypersensitivity [Unknown]
  - Chest pain [Not Recovered/Not Resolved]

NARRATIVE: CASE EVENT DATE: 201612
